FAERS Safety Report 9437668 (Version 1)
Quarter: 2013Q3

REPORT INFORMATION
  Report Type: Spontaneous
  Country: GB (occurrence: None)
  Receive Date: 20130731
  Receipt Date: 20130731
  Transmission Date: 20140515
  Serious: Yes (Disabling, Other)
  Sender: FDA-Public Use
  Company Number: AUR-APL-2013-06227

PATIENT
  Age: 44 Year
  Sex: Female
  Weight: 74 kg

DRUGS (6)
  1. GABAPENTIN (GABAPENTIN) [Suspect]
     Indication: NEURALGIA
     Dosage: 300 MG (100 MG, 3 IN 1 D, PO
     Route: 048
     Dates: start: 20130704
  2. NAPROXEN (NAPROXEN) [Suspect]
     Indication: NEURALGIA
     Dosage: 1000 MG (500 MG, 2 IN 1 D), PO
     Route: 048
     Dates: start: 20130601
  3. DOSULEPIN [Suspect]
     Indication: PRODUCT USED FOR UNKNOWN INDICATION
     Dosage: 75 MG (75 MG, 1 IN 1 D) PO
     Route: 048
     Dates: start: 20130501
  4. LORATIDINE [Concomitant]
  5. VALTREX (VALACICLOVIR HYDROCHLORIDE) [Concomitant]
  6. VITAMIN B 12 (VITAMIN B NOS) [Concomitant]

REACTIONS (14)
  - Decreased appetite [None]
  - Vision blurred [None]
  - Chest pain [None]
  - Confusional state [None]
  - Depression [None]
  - Malaise [None]
  - Hypertension [None]
  - Lethargy [None]
  - Amnesia [None]
  - Nausea [None]
  - Negative thoughts [None]
  - Palpitations [None]
  - Suicidal ideation [None]
  - Condition aggravated [None]
